FAERS Safety Report 6719159-6 (Version None)
Quarter: 2010Q2

REPORT INFORMATION
  Report Type: 
  Country: None (occurrence: None)
  Receive Date: 20100510
  Receipt Date: 20100510
  Transmission Date: 20101027
  Serious: Yes (Other)
  Sender: FDA-Public Use
  Company Number: None

PATIENT
  Sex: Female
  Weight: 122.0176 kg

DRUGS (2)
  1. LISINOPRIL AND HYDROCHLOROTHIAZIDE [Suspect]
     Indication: HYPERTENSION
     Dosage: ONCE QDAY PO
     Route: 048
     Dates: start: 20100410
  2. HYZAAR [Suspect]
     Indication: HYPERTENSION
     Dosage: ONCE QDAY PO
     Route: 048
     Dates: start: 20091220, end: 20100121

REACTIONS (2)
  - INSOMNIA [None]
  - NO THERAPEUTIC RESPONSE [None]
